FAERS Safety Report 9008276 (Version 2)
Quarter: 2014Q1

REPORT INFORMATION
  Report Type: Report from Study
  Country: NL (occurrence: NL)
  Receive Date: 20130111
  Receipt Date: 20140318
  Transmission Date: 20141002
  Serious: Yes (Death)
  Sender: FDA-Public Use
  Company Number: PHHY2013NL002307

PATIENT
  Age: 53 Year
  Sex: Male

DRUGS (10)
  1. ZOMETA [Suspect]
     Indication: METASTASES TO BONE
     Dosage: 4 MG/100 ML ONCE PER 28 DAYS
     Route: 042
     Dates: start: 201203
  2. ZOMETA [Suspect]
     Dosage: 4 MG/100 ML ONCE PER 28 DAYS
     Route: 042
     Dates: start: 20121213
  3. PREDNISONE [Concomitant]
     Dosage: 5 MG, 1DD
  4. CELLCEPT [Concomitant]
     Dosage: 500 MG, 2 DD
  5. TACROLIMUS [Concomitant]
     Dosage: 4 MG, 2 DD
  6. BARACLUDE [Concomitant]
     Dosage: 0.5 MG, 1 DD
  7. METHADONE [Concomitant]
     Dosage: UNK UKN, UNK
  8. AMITRIPTYLINE [Concomitant]
     Dosage: 25 MG, 1 DD
  9. METOCLOPRAMIDE [Concomitant]
     Dosage: 10 MG, 2 DD
  10. PARACETAMOL [Concomitant]
     Dosage: 1000 MG, 4 DD

REACTIONS (1)
  - Hepatocellular carcinoma [Fatal]
